FAERS Safety Report 8961316 (Version 1)
Quarter: 2012Q4

REPORT INFORMATION
  Report Type: 
  Country: US (occurrence: US)
  Receive Date: 20121212
  Receipt Date: 20121212
  Transmission Date: 20130627
  Serious: No
  Sender: FDA-Public Use
  Company Number: US-JHP PHARMACEUTICALS, LLC-JHP201200001

PATIENT
  Sex: Female

DRUGS (1)
  1. PITOCIN [Suspect]
     Dosage: UNK UNK, Infusion
     Route: 042
     Dates: start: 201112, end: 201112

REACTIONS (3)
  - Device infusion issue [Recovered/Resolved]
  - Incorrect drug administration rate [Recovered/Resolved]
  - No adverse event [Recovered/Resolved]
